FAERS Safety Report 6155683-5 (Version None)
Quarter: 2009Q2

REPORT INFORMATION
  Report Type: 
  Country: None (occurrence: None)
  Receive Date: 20090415
  Receipt Date: 20090409
  Transmission Date: 20091009
  Serious: Yes (Hospitalization)
  Sender: FDA-Public Use
  Company Number: A0777804A

PATIENT
  Age: 85 Year
  Sex: Male

DRUGS (15)
  1. LAMICTAL [Suspect]
     Route: 048
     Dates: start: 20090201, end: 20090401
  2. KEPPRA [Concomitant]
  3. MULTI-VITAMIN [Concomitant]
  4. EXELON [Concomitant]
  5. VITAMIN E [Concomitant]
  6. COUMADIN [Concomitant]
  7. TYLENOL (CAPLET) [Concomitant]
  8. ZOFRAN [Concomitant]
  9. MULTIVITAMIN [Concomitant]
  10. FERROUS SULFATE TAB [Concomitant]
  11. LESCOL [Concomitant]
  12. LASIX [Concomitant]
  13. LISINOPRIL [Concomitant]
  14. NAMENDA [Concomitant]
  15. TOPROL-XL [Concomitant]

REACTIONS (8)
  - ASTHENIA [None]
  - BALANCE DISORDER [None]
  - DEHYDRATION [None]
  - DIZZINESS [None]
  - FALL [None]
  - HEADACHE [None]
  - RASH [None]
  - WEIGHT DECREASED [None]
